FAERS Safety Report 5083363-6 (Version None)
Quarter: 2006Q3

REPORT INFORMATION
  Report Type: 
  Country: None (occurrence: None)
  Receive Date: 20060818
  Receipt Date: 20060502
  Transmission Date: 20061208
  Serious: Yes (Hospitalization)
  Sender: FDA-Public Use
  Company Number: FR-AVENTIS-200611661FR

PATIENT
  Age: 81 Year
  Sex: Female

DRUGS (17)
  1. CALSYN [Suspect]
     Indication: OSTEOPOROSIS
     Dates: start: 20060218, end: 20060303
  2. CALSYN [Suspect]
     Indication: SPINAL COMPRESSION FRACTURE
     Dates: start: 20060218, end: 20060303
  3. STRONTIUM RANELATE [Suspect]
     Indication: OSTEOPOROSIS
     Route: 048
     Dates: start: 20060218, end: 20060313
  4. DUPHALAC [Suspect]
     Route: 048
     Dates: start: 20060302
  5. FELDENE [Suspect]
     Indication: RHEUMATOID ARTHRITIS
     Route: 030
     Dates: start: 20060215, end: 20060215
  6. EVISTA [Suspect]
     Indication: OSTEOPOROSIS
     Route: 048
     Dates: start: 20031215, end: 20060217
  7. SKENAN [Suspect]
     Indication: RHEUMATOID ARTHRITIS
     Route: 048
     Dates: start: 20060224
  8. CELESTENE [Concomitant]
     Route: 048
  9. SPECIAFOLDINE [Concomitant]
  10. ESBERIVEN FORT [Concomitant]
  11. LASILIX [Concomitant]
  12. FENOFIBRATE [Concomitant]
  13. CARDENSIEL [Concomitant]
  14. TEMESTA [Concomitant]
  15. CACIT [Concomitant]
  16. CORTANCYL [Concomitant]
  17. NOVATREX ^LEDERLE^ [Concomitant]

REACTIONS (2)
  - DEEP VEIN THROMBOSIS [None]
  - PULMONARY EMBOLISM [None]
